FAERS Safety Report 6132011-2 (Version None)
Quarter: 2009Q1

REPORT INFORMATION
  Report Type: 
  Country: None (occurrence: None)
  Receive Date: 20090325
  Receipt Date: 20090313
  Transmission Date: 20090719
  Serious: Yes (Life-Threatening)
  Sender: FDA-Public Use
  Company Number: JP-SANOFI-SYNTHELABO-A01200902979

PATIENT
  Sex: Male

DRUGS (5)
  1. BEVACIZUMAB [Concomitant]
     Indication: LARGE INTESTINE CARCINOMA
     Dosage: UNK
     Route: 041
     Dates: start: 20090311, end: 20090311
  2. CALCIUM LEVOFOLINATE [Concomitant]
     Indication: LARGE INTESTINE CARCINOMA
     Dosage: UNK
     Route: 041
     Dates: start: 20090311, end: 20090311
  3. FLUOROURACIL [Suspect]
     Dosage: UNK
     Route: 040
     Dates: start: 20090311, end: 20090311
  4. FLUOROURACIL [Suspect]
     Dosage: UNK
     Route: 041
     Dates: start: 20090311, end: 20090312
  5. ELPLAT [Suspect]
     Indication: LARGE INTESTINE CARCINOMA
     Dosage: UNK
     Route: 041
     Dates: start: 20090311, end: 20090311

REACTIONS (1)
  - HEPATIC ENCEPHALOPATHY [None]
